FAERS Safety Report 6473311-6 (Version None)
Quarter: 2009Q4

REPORT INFORMATION
  Report Type: 
  Country: None (occurrence: None)
  Receive Date: 20091204
  Receipt Date: 20081024
  Transmission Date: 20100525
  Serious: Yes (Hospitalization)
  Sender: FDA-Public Use
  Company Number: DE-ELI_LILLY_AND_COMPANY-DE200809006191

PATIENT
  Sex: Female
  Weight: 75 kg

DRUGS (12)
  1. ZYPREXA [Suspect]
     Indication: ANXIETY DISORDER
     Dosage: 5 MG, DAILY (1/D)
     Route: 048
     Dates: start: 20080310, end: 20080313
  2. METOHEXAL [Concomitant]
     Indication: HYPERTENSION
     Dosage: 190 MG, DAILY (1/D)
     Route: 048
     Dates: start: 20040101
  3. DELIX PROTECT [Concomitant]
     Indication: HYPERTENSION
     Dosage: 10 MG, DAILY (1/D)
     Route: 048
     Dates: start: 20040101
  4. ZEFFIX [Concomitant]
     Indication: HEPATITIS B
     Dosage: 100 MG, DAILY (1/D)
     Route: 048
     Dates: start: 20030101
  5. MAGNETRANS /00552801/ [Concomitant]
     Dosage: 243 MG, DAILY (1/D)
     Route: 048
     Dates: start: 20080201
  6. GINGIUM [Concomitant]
     Dosage: 120 MG, DAILY (1/D)
     Route: 048
     Dates: start: 20080101, end: 20080312
  7. LEVOTHYROXINE SODIUM [Concomitant]
     Indication: HYPOTHYROIDISM
     Dosage: 125 UG, DAILY (1/D)
     Route: 048
     Dates: start: 20060101
  8. FLUTIDE AIR [Concomitant]
     Indication: ASTHMA
     Dosage: 0.1 MG, DAILY (1/D)
     Route: 055
  9. PROGRAF [Concomitant]
     Indication: LIVER TRANSPLANT
     Dosage: 2 MG, DAILY (1/D)
     Route: 048
     Dates: start: 20030101
  10. CORVATON [Concomitant]
     Indication: HYPERTENSION
     Dosage: 4 MG, DAILY (1/D)
     Route: 048
  11. ATACAND [Concomitant]
     Dosage: 8 MG, UNK
  12. PANTOZOL [Concomitant]
     Dosage: 20 MG, UNK

REACTIONS (1)
  - LONG QT SYNDROME [None]
